FAERS Safety Report 5440675-1 (Version None)
Quarter: 2007Q3

REPORT INFORMATION
  Report Type: 
  Country: None (occurrence: None)
  Receive Date: 20070831
  Receipt Date: 20070814
  Transmission Date: 20080115
  Serious: No
  Sender: FDA-Public Use
  Company Number: US-BOEHRINGER INGELHEIM PHARMACEUTICALS, INC.-2007-BP-19201BP

PATIENT
  Age: 80 Year
  Sex: Female

DRUGS (5)
  1. ZANTAC 150 [Suspect]
     Indication: DYSPEPSIA
     Route: 048
     Dates: start: 20070811, end: 20070812
  2. ACTONEL [Concomitant]
  3. DETROL [Concomitant]
  4. BUPROPION HCL [Concomitant]
     Indication: DEPRESSION
  5. LORAZEPAM [Concomitant]

REACTIONS (2)
  - DIZZINESS [None]
  - SALIVARY HYPERSECRETION [None]
